FAERS Safety Report 7959860-X (Version None)
Quarter: 2011Q4

REPORT INFORMATION
  Report Type: 
  Country: None (occurrence: None)
  Receive Date: 20111206
  Receipt Date: 20111126
  Transmission Date: 20120403
  Serious: Yes (Hospitalization, Other)
  Sender: FDA-Public Use
  Company Number: CZ-JNJFOC-20111007933

PATIENT
  Sex: Male
  Weight: 92 kg

DRUGS (5)
  1. PREDNISONE [Suspect]
     Route: 048
     Dates: start: 20111019
  2. PREDNISONE [Suspect]
     Indication: PROSTATE CANCER METASTATIC
     Route: 048
     Dates: start: 20110803, end: 20111018
  3. ABIRATERONE ACETATE [Suspect]
     Route: 048
  4. PREDNISONE [Suspect]
     Route: 048
     Dates: start: 20090401, end: 20090701
  5. ABIRATERONE ACETATE [Suspect]
     Indication: PROSTATE CANCER METASTATIC
     Route: 048
     Dates: start: 20110803

REACTIONS (1)
  - HEMIPARESIS [None]
